FAERS Safety Report 16648144 (Version 1)
Quarter: 2019Q3

REPORT INFORMATION
  Report Type: Spontaneous
  Country: ES (occurrence: ES)
  Receive Date: 20190730
  Receipt Date: 20190730
  Transmission Date: 20191004
  Serious: Yes (Other)
  Sender: FDA-Public Use
  Company Number: ES-JNJFOC-20190735395

PATIENT
  Age: 36 Year
  Sex: Female

DRUGS (2)
  1. IBUPROFEN. [Suspect]
     Active Substance: IBUPROFEN
     Indication: FIBROMYALGIA
     Dosage: MEDICATION ERROR
     Route: 048
     Dates: start: 201907, end: 20190704
  2. DEXKETOPROFENO                     /01363801/ [Suspect]
     Active Substance: DEXKETOPROFEN
     Indication: FIBROMYALGIA
     Dosage: MEDICATION ERROR
     Route: 048
     Dates: start: 201907, end: 20190704

REACTIONS (2)
  - Product administration error [Unknown]
  - Haematemesis [Unknown]

NARRATIVE: CASE EVENT DATE: 20190704
